FAERS Safety Report 5316639-5 (Version None)
Quarter: 2007Q2

REPORT INFORMATION
  Report Type: 
  Country: None (occurrence: None)
  Receive Date: 20070504
  Receipt Date: 20070426
  Transmission Date: 20071010
  Serious: Yes (Hospitalization)
  Sender: FDA-Public Use
  Company Number: FR-AMGEN-UK222797

PATIENT

DRUGS (1)
  1. KINERET [Suspect]
     Indication: JUVENILE ARTHRITIS
     Route: 058
     Dates: start: 20060101, end: 20060101

REACTIONS (4)
  - LUNG DISORDER [None]
  - PHARYNGITIS [None]
  - PYREXIA [None]
  - VOMITING [None]
